FAERS Safety Report 12858377 (Version 2)
Quarter: 2016Q4

REPORT INFORMATION
  Report Type: Report from Study
  Country: PE (occurrence: PE)
  Receive Date: 20161018
  Receipt Date: 20161021
  Transmission Date: 20170207
  Serious: Yes (Hospitalization)
  Sender: FDA-Public Use
  Company Number: PE-009507513-1607PER007977

PATIENT
  Age: 69 Year
  Sex: Male

DRUGS (1)
  1. SITAGLIPTIN PHOSPHATE [Suspect]
     Active Substance: SITAGLIPTIN PHOSPHATE
     Indication: CARDIOMEGALY
     Dosage: HALF 100MG TABLET PER DAY
     Route: 048
     Dates: end: 201608

REACTIONS (5)
  - Lung disorder [Unknown]
  - Wrong technique in product usage process [Unknown]
  - Product use issue [Unknown]
  - Nephropathy [Unknown]
  - Cardiac disorder [Unknown]
